FAERS Safety Report 21122792 (Version 1)
Quarter: 2022Q3

REPORT INFORMATION
  Report Type: Report from Study
  Country: AR (occurrence: AR)
  Receive Date: 20220723
  Receipt Date: 20220723
  Transmission Date: 20221027
  Serious: Yes (Other)
  Sender: FDA-Public Use
  Company Number: AR-NOVARTISPH-NVSC2022AR166147

PATIENT
  Sex: Male

DRUGS (1)
  1. EXFORGE [Suspect]
     Active Substance: AMLODIPINE BESYLATE\VALSARTAN
     Indication: Hypertension
     Dosage: 2 DOSAGE FORM OF 5/160 MG, QD, STARTED APPROXIMATELY 10 YEARS AGO
     Route: 065

REACTIONS (2)
  - Deafness [Not Recovered/Not Resolved]
  - Inappropriate schedule of product administration [Unknown]
